FAERS Safety Report 20011063 (Version 1)
Quarter: 2021Q4

REPORT INFORMATION
  Report Type: Report from Study
  Country: US (occurrence: US)
  Receive Date: 20211028
  Receipt Date: 20211028
  Transmission Date: 20220303
  Serious: Yes (Other)
  Sender: FDA-Public Use
  Company Number: US-ALLERGAN-2136200US

PATIENT
  Sex: Female
  Weight: 60.77 kg

DRUGS (9)
  1. BOTULINUM TOXIN TYPE A [Suspect]
     Active Substance: BOTULINUM TOXIN TYPE A
     Indication: Migraine
     Dosage: 10 UNITS, SINGLE
     Route: 030
     Dates: start: 20210906, end: 20210906
  2. BOTULINUM TOXIN TYPE A [Suspect]
     Active Substance: BOTULINUM TOXIN TYPE A
     Dosage: 5 UNITS, SINGLE
     Route: 030
     Dates: start: 20210906, end: 20210906
  3. BOTULINUM TOXIN TYPE A [Suspect]
     Active Substance: BOTULINUM TOXIN TYPE A
     Dosage: 20 UNITS, SINGLE
     Route: 030
     Dates: start: 20210906, end: 20210906
  4. BOTULINUM TOXIN TYPE A [Suspect]
     Active Substance: BOTULINUM TOXIN TYPE A
     Dosage: 40 UNITS, SINGLE
     Route: 030
     Dates: start: 20210906, end: 20210906
  5. BOTULINUM TOXIN TYPE A [Suspect]
     Active Substance: BOTULINUM TOXIN TYPE A
     Dosage: 40 UNITS, SINGLE
     Route: 030
     Dates: start: 20210906, end: 20210906
  6. BOTULINUM TOXIN TYPE A [Suspect]
     Active Substance: BOTULINUM TOXIN TYPE A
     Dosage: 40 UNITS, SINGLE
     Route: 030
     Dates: start: 20210906, end: 20210906
  7. BOTULINUM TOXIN TYPE A [Suspect]
     Active Substance: BOTULINUM TOXIN TYPE A
     Dosage: 45 UNITS, SINGLE
     Route: 030
     Dates: start: 20210906, end: 20210906
  8. FIORICET [Concomitant]
     Active Substance: ACETAMINOPHEN\BUTALBITAL\CAFFEINE
     Indication: Migraine
     Dosage: UNK, PRN
  9. SUMATRIPTAN [Concomitant]
     Active Substance: SUMATRIPTAN
     Indication: Migraine
     Dosage: UNK, PRN

REACTIONS (8)
  - Cataract [Unknown]
  - Muscle spasticity [Unknown]
  - Major depression [Unknown]
  - Generalised anxiety disorder [Unknown]
  - Ophthalmic migraine [Unknown]
  - Off label use [Unknown]
  - Headache [Unknown]
  - Therapeutic response shortened [Unknown]
